FAERS Safety Report 5033460-6 (Version None)
Quarter: 2006Q2

REPORT INFORMATION
  Report Type: 
  Country: None (occurrence: None)
  Receive Date: 20060623
  Receipt Date: 20060613
  Transmission Date: 20061013
  Serious: Yes (Hospitalization, Other)
  Sender: FDA-Public Use
  Company Number: CA-JNJFOC-20060402196

PATIENT
  Sex: Female
  Weight: 80 kg

DRUGS (3)
  1. REMICADE [Suspect]
     Indication: ANKYLOSING SPONDYLITIS
     Route: 042
  2. REMICADE [Suspect]
     Indication: RHEUMATOID ARTHRITIS
     Route: 042
  3. METHOTREXATE [Suspect]
     Indication: ANKYLOSING SPONDYLITIS

REACTIONS (13)
  - CHEST PAIN [None]
  - CHEST WALL ABSCESS [None]
  - ERYTHEMA [None]
  - INFLAMMATION [None]
  - LOCAL SWELLING [None]
  - LUNG INFECTION [None]
  - LYMPH GLAND INFECTION [None]
  - MEDIASTINAL ABSCESS [None]
  - NAUSEA [None]
  - STAPHYLOCOCCAL BACTERAEMIA [None]
  - STAPHYLOCOCCAL INFECTION [None]
  - THYROID NEOPLASM [None]
  - VOMITING [None]
